FAERS Safety Report 23315266 (Version 2)
Quarter: 2023Q4

REPORT INFORMATION
  Report Type: Report from Study
  Country: IT (occurrence: IT)
  Receive Date: 20231219
  Receipt Date: 20231228
  Transmission Date: 20240110
  Serious: Yes (Hospitalization)
  Sender: FDA-Public Use
  Company Number: None

PATIENT
  Age: 13 Year
  Sex: Female
  Weight: 57 kg

DRUGS (2)
  1. XANAX [Suspect]
     Active Substance: ALPRAZOLAM
     Indication: Anxiety
     Dosage: 14.25 MILLIGRAM (14MG, TOTAL, ORAL)
     Route: 048
     Dates: start: 20231101, end: 20231101
  2. BUTYLSCOPOLAMINE BROMIDE [Concomitant]
     Active Substance: BUTYLSCOPOLAMINE BROMIDE
     Indication: Dysmenorrhoea
     Dosage: 10 MILLIGRAM (10 MILLIGRAM, ORAL)
     Route: 048
     Dates: start: 20231101, end: 20231101

REACTIONS (4)
  - Disorientation [Recovered/Resolved]
  - Disorganised speech [Recovered/Resolved]
  - Disturbance in attention [Recovered/Resolved]
  - Drug abuse [Recovered/Resolved]

NARRATIVE: CASE EVENT DATE: 20231101
